FAERS Safety Report 9752801 (Version 1)
Quarter: 2013Q4

REPORT INFORMATION
  Report Type: Spontaneous
  Country: US (occurrence: US)
  Receive Date: 20131213
  Receipt Date: 20131213
  Transmission Date: 20140711
  Serious: No
  Sender: FDA-Public Use
  Company Number: US-009507513-1312USA005520

PATIENT
  Age: 17 Year
  Sex: Female
  Weight: 88.89 kg

DRUGS (2)
  1. IMPLANON [Suspect]
     Indication: CONTRACEPTION
     Dosage: 1 DF, UNK
     Route: 059
     Dates: start: 20091022
  2. IMPLANON [Suspect]
     Indication: MENSTRUATION IRREGULAR

REACTIONS (2)
  - Unintended pregnancy [Unknown]
  - Incorrect drug administration duration [Unknown]
